FAERS Safety Report 16094913 (Version 1)
Quarter: 2019Q1

REPORT INFORMATION
  Report Type: Spontaneous
  Country: US (occurrence: US)
  Receive Date: 20190215
  Receipt Date: 20190215
  Transmission Date: 20190418
  Serious: Yes (Life-Threatening, Disabling)
  Sender: FDA-Public Use
  Company Number: None

PATIENT
  Age: 77 Year
  Sex: Female
  Weight: 63.5 kg

DRUGS (9)
  1. BENAZAPRIL [Concomitant]
  2. AMLODIPINE [Concomitant]
     Active Substance: AMLODIPINE BESYLATE
  3. NAPROXEN SODIUM 220MG [Suspect]
     Active Substance: NAPROXEN SODIUM
     Indication: ARTHRITIS
     Dosage: ?          QUANTITY:1 CAPLET;OTHER FREQUENCY:EVERY 8 TO 12 HOURS
     Dates: start: 2014
  4. TYLENOL [Concomitant]
     Active Substance: ACETAMINOPHEN
  5. MELOXICAM. [Concomitant]
     Active Substance: MELOXICAM
  6. TRAMADOL. [Concomitant]
     Active Substance: TRAMADOL
  7. OXYBUTYNIN. [Concomitant]
     Active Substance: OXYBUTYNIN CHLORIDE
  8. NAPROXEN SODIUM 220MG [Suspect]
     Active Substance: NAPROXEN SODIUM
     Indication: BACK PAIN
     Dosage: ?          QUANTITY:1 CAPLET;OTHER FREQUENCY:EVERY 8 TO 12 HOURS
     Dates: start: 2014
  9. HYDROCHLORITHIAZIDE [Concomitant]
     Active Substance: HYDROCHLOROTHIAZIDE

REACTIONS (4)
  - Cerebrovascular accident [None]
  - Anaemia [None]
  - Drug interaction [None]
  - Hypertension [None]

NARRATIVE: CASE EVENT DATE: 2015
